FAERS Safety Report 15589903 (Version 3)
Quarter: 2019Q1

REPORT INFORMATION
  Report Type: Spontaneous
  Country: DE (occurrence: DE)
  Receive Date: 20181106
  Receipt Date: 20190110
  Transmission Date: 20190417
  Serious: Yes (Life-Threatening, Hospitalization)
  Sender: FDA-Public Use
  Company Number: DE-BAUSCH-BL-2018-029993

PATIENT
  Age: 81 Year
  Sex: Male

DRUGS (2)
  1. DEXAMETHASONE. [Suspect]
     Active Substance: DEXAMETHASONE
     Indication: PLASMA CELL MYELOMA
     Route: 048
     Dates: start: 20180720, end: 20180803
  2. REVLIMID [Suspect]
     Active Substance: LENALIDOMIDE
     Indication: PLASMA CELL MYELOMA
     Route: 048
     Dates: start: 20180720, end: 20181003

REACTIONS (4)
  - Disseminated intravascular coagulation [Recovered/Resolved]
  - Anaemia [Not Recovered/Not Resolved]
  - Dermatitis allergic [Recovered/Resolved]
  - Staphylococcus test positive [Recovered/Resolved]

NARRATIVE: CASE EVENT DATE: 20181012
